FAERS Safety Report 7099851-7 (Version None)
Quarter: 2010Q4

REPORT INFORMATION
  Report Type: 
  Country: None (occurrence: None)
  Receive Date: 20101105
  Receipt Date: 20100817
  Transmission Date: 20110411
  Serious: No
  Sender: FDA-Public Use
  Company Number: 2010-00908

PATIENT
  Age: 68 Year
  Sex: Male
  Weight: 76.2043 kg

DRUGS (7)
  1. ZICAM COLD REMEDY ZAVORS [Suspect]
     Dosage: Q6 HOURS X 7 DAYS
     Dates: start: 20100803, end: 20100810
  2. TEMAZEPAM [Concomitant]
  3. MIRAPEX [Concomitant]
  4. PREVACID [Concomitant]
  5. LAMOTRIGINE [Concomitant]
  6. ENELAPRIL [Concomitant]
  7. LOVASTATIN [Concomitant]

REACTIONS (1)
  - AGEUSIA [None]
